FAERS Safety Report 4579721-6 (Version None)
Quarter: 2005Q1

REPORT INFORMATION
  Report Type: 
  Country: None (occurrence: None)
  Receive Date: 20050210
  Receipt Date: 20050210
  Transmission Date: 20050727
  Serious: No
  Sender: FDA-Public Use
  Company Number: None

PATIENT
  Sex: Male
  Weight: 84.5 kg

DRUGS (3)
  1. GENTAMICIN [Suspect]
     Indication: ENDOCARDITIS ENTEROCOCCAL
     Dosage: 80MG  Q 8 HOURS
     Dates: start: 20040913, end: 20040917
  2. RADIOCONTRAST DYE [Concomitant]
  3. FUROSEMIDE [Concomitant]

REACTIONS (1)
  - BLOOD CREATININE INCREASED [None]
